FAERS Safety Report 8510663-7 (Version None)
Quarter: 2012Q3

REPORT INFORMATION
  Report Type: 
  Country: None (occurrence: None)
  Receive Date: 20120716
  Receipt Date: 20120709
  Transmission Date: 20120928
  Serious: Yes (Hospitalization)
  Sender: FDA-Public Use
  Company Number: US-AMGEN-USASP2012042424

PATIENT
  Age: 52 Year
  Sex: Female

DRUGS (2)
  1. ENBREL [Suspect]
     Indication: RHEUMATOID ARTHRITIS
     Dosage: 50 MG, QWK
     Dates: start: 20060101
  2. TREXALL [Concomitant]
     Dosage: 7 UNK, UNK
     Dates: start: 20030101

REACTIONS (7)
  - ERYTHEMA [None]
  - JOINT SWELLING [None]
  - STERNAL FRACTURE [None]
  - JOINT DISLOCATION [None]
  - GAIT DISTURBANCE [None]
  - ACCIDENT [None]
  - FOOT FRACTURE [None]
